FAERS Safety Report 22031930 (Version 2)
Quarter: 2023Q2

REPORT INFORMATION
  Report Type: Spontaneous
  Country: US (occurrence: None)
  Receive Date: 20230224
  Receipt Date: 20230410
  Transmission Date: 20230721
  Serious: No
  Sender: FDA-Public Use
  Company Number: 2023A024833

PATIENT
  Sex: Male

DRUGS (1)
  1. CALQUENCE [Suspect]
     Active Substance: ACALABRUTINIB
     Indication: Chronic lymphocytic leukaemia
     Route: 048
     Dates: start: 202112

REACTIONS (8)
  - Influenza [Recovering/Resolving]
  - Gastroenteritis viral [Unknown]
  - Pain [Unknown]
  - Road traffic accident [Unknown]
  - Abdominal discomfort [Unknown]
  - Feeling abnormal [Unknown]
  - Intentional product misuse [Unknown]
  - Product dose omission issue [Unknown]
